FAERS Safety Report 4398883-7 (Version None)
Quarter: 2004Q3

REPORT INFORMATION
  Report Type: 
  Country: None (occurrence: None)
  Receive Date: 20040712
  Receipt Date: 20040701
  Transmission Date: 20050211
  Serious: No
  Sender: FDA-Public Use
  Company Number: 2004UW13704

PATIENT
  Age: 41 Year
  Sex: Male
  Weight: 74.8435 kg

DRUGS (3)
  1. SEROQUEL [Suspect]
     Indication: POST-TRAUMATIC STRESS DISORDER
     Dosage: 400 MG QD PO
     Route: 048
     Dates: start: 20000101, end: 20030101
  2. LORTAB [Concomitant]
  3. KLONOPIN [Concomitant]

REACTIONS (5)
  - GINGIVAL DISCOLOURATION [None]
  - LACERATION [None]
  - NAIL DISCOLOURATION [None]
  - TONGUE INJURY [None]
  - TOOTH LOSS [None]
